FAERS Safety Report 8585454-1 (Version None)
Quarter: 2012Q3

REPORT INFORMATION
  Report Type: 
  Country: None (occurrence: None)
  Receive Date: 20120810
  Receipt Date: 20120807
  Transmission Date: 20120928
  Serious: No
  Sender: FDA-Public Use
  Company Number: US-BAYER-2012-080833

PATIENT
  Sex: Male

DRUGS (1)
  1. MIRENA [Suspect]
     Route: 003

REACTIONS (1)
  - DYSPAREUNIA [None]
